FAERS Safety Report 5748762-5 (Version None)
Quarter: 2008Q2

REPORT INFORMATION
  Report Type: 
  Country: None (occurrence: None)
  Receive Date: 20080522
  Receipt Date: 20080506
  Transmission Date: 20081010
  Serious: Yes (Other)
  Sender: FDA-Public Use
  Company Number: 2008AL003665

PATIENT
  Age: 72 Year
  Sex: Female

DRUGS (7)
  1. DIGOXIN [Suspect]
  2. LOPRESSOR [Concomitant]
  3. VITAMIN E [Concomitant]
  4. SINEMET [Concomitant]
  5. CALCIUM [Concomitant]
  6. ASPIRIN [Concomitant]
  7. UNSPECIFIED MEDICATION FOR HIGH CHOLESTEROL [Concomitant]

REACTIONS (1)
  - CHEST PAIN [None]
